FAERS Safety Report 6554949-4 (Version None)
Quarter: 2010Q1

REPORT INFORMATION
  Report Type: 
  Country: None (occurrence: None)
  Receive Date: 20100126
  Receipt Date: 20100111
  Transmission Date: 20100710
  Serious: Yes (Hospitalization)
  Sender: FDA-Public Use
  Company Number: 1-21285257

PATIENT
  Age: 39 Year
  Sex: Female

DRUGS (2)
  1. CARBAMAZEPINE [Suspect]
     Indication: EPILEPSY
  2. TOPIRAMATE [Suspect]
     Indication: EPILEPSY

REACTIONS (12)
  - ANXIETY [None]
  - CEREBRAL ATROPHY [None]
  - CEREBROSCLEROSIS [None]
  - DELUSION [None]
  - DEPRESSION [None]
  - EMOTIONAL DISTRESS [None]
  - FEELING ABNORMAL [None]
  - FEELING GUILTY [None]
  - HALLUCINATION, AUDITORY [None]
  - INSOMNIA [None]
  - PSYCHOTIC DISORDER [None]
  - STATUS EPILEPTICUS [None]
